FAERS Safety Report 26137576 (Version 2)
Quarter: 2025Q4

REPORT INFORMATION
  Report Type: Report from Study
  Country: EU (occurrence: EU)
  Receive Date: 20251209
  Receipt Date: 20251218
  Transmission Date: 20260117
  Serious: Yes (Death, Hospitalization)
  Sender: ABBVIE
  Company Number: EU-ABBVIE-6575158

PATIENT
  Age: 72 Year
  Sex: Male

DRUGS (3)
  1. CARBIDOPA\LEVODOPA [Suspect]
     Active Substance: CARBIDOPA\LEVODOPA
     Indication: Parkinson^s disease
     Dosage: 20MG LEVODOPA 5MG CARBIDOPA. MORNING DOSE 15.5CC; CONTINUOUS DOSE 3.5CC/H; EXTRA DOSE 1.5CC.
     Route: 050
     Dates: start: 20211123
  2. CARBIDOPA\LEVODOPA [Suspect]
     Active Substance: CARBIDOPA\LEVODOPA
     Dosage: 20MG LEVODOPA + 5MG CARBIDOPA. MORNING DOSE 20 CC; CONTINUOUS DOSE 3.8 CC/H. EXTRA DOSE 4.2 ML
     Route: 050
     Dates: start: 2025, end: 20251212
  3. INFLUENZA VIRUS VACCINE [Concomitant]
     Active Substance: INFLUENZA VIRUS VACCINE
     Indication: Influenza immunisation
     Dates: start: 20251107

REACTIONS (3)
  - Cardio-respiratory arrest [Fatal]
  - Hypoxia [Fatal]
  - Pneumonia [Fatal]

NARRATIVE: CASE EVENT DATE: 20251201
